FAERS Safety Report 19901868 (Version 1)
Quarter: 2021Q3

REPORT INFORMATION
  Report Type: Report from Study
  Country: None (occurrence: CA)
  Receive Date: 20210929
  Receipt Date: 20210929
  Transmission Date: 20211014
  Serious: Yes (Hospitalization, Other)
  Sender: FDA-Public Use
  Company Number: CA-ABBVIE-21K-028-4096625-00

PATIENT
  Sex: Male

DRUGS (1)
  1. SKYRIZI [Suspect]
     Active Substance: RISANKIZUMAB-RZAA
     Indication: PSORIASIS
     Route: 058
     Dates: start: 20210416

REACTIONS (4)
  - Hospitalisation [Not Recovered/Not Resolved]
  - Deep vein thrombosis [Unknown]
  - Intestinal operation [Unknown]
  - Urosepsis [Unknown]

NARRATIVE: CASE EVENT DATE: 2021
